FAERS Safety Report 5240592-6 (Version None)
Quarter: 2007Q1

REPORT INFORMATION
  Report Type: 
  Country: None (occurrence: None)
  Receive Date: 20061208
  Receipt Date: 20051107
  Transmission Date: 20070707
  Serious: Yes (Other)
  Sender: FDA-Public Use
  Company Number: 2005UW16866

PATIENT
  Sex: Male

DRUGS (2)
  1. TOPROL-XL [Suspect]
  2. CRESTOR [Suspect]

REACTIONS (2)
  - BLOOD GLUCOSE INCREASED [None]
  - HEPATIC ENZYME INCREASED [None]
